FAERS Safety Report 23607412 (Version 2)
Quarter: 2024Q2

REPORT INFORMATION
  Report Type: Spontaneous
  Country: US (occurrence: US)
  Receive Date: 20240307
  Receipt Date: 20240402
  Transmission Date: 20240716
  Serious: Yes (Disabling, Other)
  Sender: FDA-Public Use
  Company Number: US-PFIZER INC-PV202400031433

PATIENT
  Age: 43 Year
  Sex: Female
  Weight: 72.562 kg

DRUGS (2)
  1. TOVIAZ [Suspect]
     Active Substance: FESOTERODINE FUMARATE
     Indication: Urinary incontinence
     Dosage: 20 MG
     Dates: start: 2015
  2. TOVIAZ [Suspect]
     Active Substance: FESOTERODINE FUMARATE
     Indication: Incontinence

REACTIONS (1)
  - Multiple sclerosis [Recovered/Resolved]

NARRATIVE: CASE EVENT DATE: 20150101
